FAERS Safety Report 4927829-5 (Version None)
Quarter: 2006Q1

REPORT INFORMATION
  Report Type: 
  Country: None (occurrence: None)
  Receive Date: 20060222
  Receipt Date: 20060208
  Transmission Date: 20060701
  Serious: Yes (Hospitalization)
  Sender: FDA-Public Use
  Company Number: 2006S1001166

PATIENT
  Age: 38 Year
  Sex: Female
  Weight: 65.7716 kg

DRUGS (4)
  1. FENTANYL TRANSDERMAL SYSTEM [Suspect]
     Indication: INTERVERTEBRAL DISC DISORDER
     Dosage: 100 U/HR; Q3D; TRANS
     Route: 062
     Dates: start: 20050501
  2. FENTANYL TRANSDERMAL SYSTEM [Suspect]
     Indication: SPINAL LAMINECTOMY
     Dosage: 100 U/HR; Q3D; TRANS
     Route: 062
     Dates: start: 20050501
  3. PREGALIN [Concomitant]
  4. FENTANYL CITRATE [Concomitant]

REACTIONS (8)
  - CHILLS [None]
  - DIFFICULTY IN WALKING [None]
  - DRUG WITHDRAWAL SYNDROME [None]
  - HOT FLUSH [None]
  - INAPPROPRIATE SCHEDULE OF DRUG ADMINISTRATION [None]
  - PAIN [None]
  - PRURITUS [None]
  - TREATMENT NONCOMPLIANCE [None]
